FAERS Safety Report 10243707 (Version 1)
Quarter: 2014Q2

REPORT INFORMATION
  Report Type: Spontaneous
  Country: TR (occurrence: TR)
  Receive Date: 20140618
  Receipt Date: 20140618
  Transmission Date: 20141212
  Serious: Yes (Other)
  Sender: FDA-Public Use
  Company Number: TR-NOVOPROD-413440

PATIENT
  Age: 5 Year
  Sex: Female

DRUGS (1)
  1. NOVOSEVEN [Suspect]
     Indication: FACTOR VII DEFICIENCY
     Dosage: 400MCG ON MONDAY AND 600MCG ON THURSDAY (TWICE A WEEK)
     Route: 042
     Dates: start: 201405

REACTIONS (1)
  - Abdominal pain [Recovered/Resolved]
